FAERS Safety Report 10576408 (Version 1)
Quarter: 2014Q4

REPORT INFORMATION
  Report Type: Spontaneous
  Country: ES (occurrence: ES)
  Receive Date: 20141111
  Receipt Date: 20141111
  Transmission Date: 20150529
  Serious: Yes (Hospitalization)
  Sender: FDA-Public Use
  Company Number: ES-SA-2014SA150807

PATIENT
  Age: 63 Year
  Sex: Male

DRUGS (18)
  1. DRONEDARONE [Suspect]
     Active Substance: DRONEDARONE
     Indication: ATRIAL FIBRILLATION
     Route: 065
  2. BASILIXIMAB [Concomitant]
     Active Substance: BASILIXIMAB
     Indication: IMMUNOSUPPRESSION
  3. CORTICOSTEROIDS [Concomitant]
     Active Substance: CORTICOSTEROID NOS
     Indication: IMMUNOSUPPRESSION
  4. MYFORTIC [Concomitant]
     Active Substance: MYCOPHENOLATE SODIUM
     Indication: IMMUNOSUPPRESSION
  5. NYSTATIN. [Concomitant]
     Active Substance: NYSTATIN
  6. AMLODIPINE [Concomitant]
     Active Substance: AMLODIPINE BESYLATE
  7. ADVAGRAF [Interacting]
     Active Substance: TACROLIMUS
     Indication: IMMUNOSUPPRESSION
     Dosage: 0.15 MG/KG, TACROLIMUS RETARD
     Route: 048
  8. ADVAGRAF [Interacting]
     Active Substance: TACROLIMUS
     Indication: IMMUNOSUPPRESSION
     Dosage: DECREASING DOSE
     Route: 048
  9. FUROSEMIDE. [Concomitant]
     Active Substance: FUROSEMIDE
  10. PANTOPRAZOLE [Concomitant]
     Active Substance: PANTOPRAZOLE SODIUM
  11. INSULIN [Concomitant]
     Active Substance: INSULIN NOS
  12. METOCLOPRAMIDE. [Concomitant]
     Active Substance: METOCLOPRAMIDE
  13. ADVAGRAF [Interacting]
     Active Substance: TACROLIMUS
     Indication: IMMUNOSUPPRESSION
     Route: 048
  14. ADVAGRAF [Interacting]
     Active Substance: TACROLIMUS
     Indication: IMMUNOSUPPRESSION
     Route: 048
  15. DOXAZOSIN [Concomitant]
     Active Substance: DOXAZOSIN\DOXAZOSIN MESYLATE
  16. ENOXAPARIN [Concomitant]
     Active Substance: ENOXAPARIN
  17. OXYBUTYNIN [Concomitant]
     Active Substance: OXYBUTYNIN
  18. LORAZEPAM. [Concomitant]
     Active Substance: LORAZEPAM

REACTIONS (10)
  - Renal impairment [Recovering/Resolving]
  - Glomerular filtration rate decreased [Recovering/Resolving]
  - Drug level increased [Recovered/Resolved]
  - Hyperglycaemia [Unknown]
  - Hyponatraemia [Unknown]
  - Nausea [Unknown]
  - Tremor [Recovering/Resolving]
  - Drug interaction [Unknown]
  - Hyperkalaemia [Unknown]
  - Blood creatinine increased [Recovering/Resolving]
